FAERS Safety Report 8287609-2 (Version None)
Quarter: 2012Q2

REPORT INFORMATION
  Report Type: 
  Country: None (occurrence: None)
  Receive Date: 20120416
  Receipt Date: 20120410
  Transmission Date: 20120825
  Serious: Yes (Death, Other)
  Sender: FDA-Public Use
  Company Number: PHHY2012CO015981

PATIENT
  Sex: Male

DRUGS (3)
  1. CALCITRIOL [Concomitant]
  2. ZOLEDRONOC ACID [Suspect]
     Indication: OSTEOPOROSIS
     Dosage: 5 MG/100 ML SOLUTION FOR INFUSION
     Route: 042
     Dates: start: 20110101
  3. CALCIUM CARBONATE W/VITAMIN D NOS [Concomitant]

REACTIONS (3)
  - HEPATIC NEOPLASM [None]
  - GENERAL PHYSICAL HEALTH DETERIORATION [None]
  - POST PROCEDURAL COMPLICATION [None]
